FAERS Safety Report 4674354-5 (Version None)
Quarter: 2005Q2

REPORT INFORMATION
  Report Type: 
  Country: None (occurrence: None)
  Receive Date: 20050524
  Receipt Date: 20050509
  Transmission Date: 20051028
  Serious: Yes (Hospitalization)
  Sender: FDA-Public Use
  Company Number: USA050495140

PATIENT
  Age: 67 Year
  Sex: Male
  Weight: 105 kg

DRUGS (4)
  1. GEMZAR [Suspect]
     Indication: NON-SMALL CELL LUNG CANCER
     Dosage: 1 G/M2/1 OTHER
     Route: 050
     Dates: start: 20050202, end: 20050322
  2. NAVELBINE [Concomitant]
  3. MS CONTIN [Concomitant]
  4. MULTI-VITAMIN [Concomitant]

REACTIONS (4)
  - COUGH [None]
  - DRUG EFFECT DECREASED [None]
  - FLUID RETENTION [None]
  - PULMONARY EMBOLISM [None]
